FAERS Safety Report 4762082-7 (Version None)
Quarter: 2005Q3

REPORT INFORMATION
  Report Type: 
  Country: None (occurrence: None)
  Receive Date: 20050831
  Receipt Date: 20050617
  Transmission Date: 20060218
  Serious: No
  Sender: FDA-Public Use
  Company Number: PHEH2005US06954

PATIENT
  Age: 56 Year
  Sex: Female

DRUGS (4)
  1. ENABLEX [Suspect]
     Indication: BLADDER SPASM
     Dosage: 7.5 MG, QD
     Dates: start: 20050616
  2. LASIX [Concomitant]
  3. NEXIUM [Concomitant]
  4. ESTRADIOL [Concomitant]

REACTIONS (1)
  - OEDEMA PERIPHERAL [None]
